FAERS Safety Report 12813093 (Version 1)
Quarter: 2016Q4

REPORT INFORMATION
  Report Type: Report from Study
  Country: US (occurrence: US)
  Receive Date: 20161006
  Receipt Date: 20161006
  Transmission Date: 20170207
  Serious: No
  Sender: FDA-Public Use
  Company Number: US-AMGEN-USASL2016107113

PATIENT
  Age: 82 Year
  Sex: Female

DRUGS (4)
  1. CALCIUM [Concomitant]
     Active Substance: CALCIUM
     Dosage: UNK
  2. PROLIA [Suspect]
     Active Substance: DENOSUMAB
     Indication: OSTEOPOROSIS POSTMENOPAUSAL
     Dosage: UNK
     Route: 065
     Dates: start: 201403
  3. ANASTROZOLE. [Concomitant]
     Active Substance: ANASTROZOLE
     Indication: BREAST CANCER
     Dosage: UNK
  4. VITAMIN D [Concomitant]
     Active Substance: CHOLECALCIFEROL
     Dosage: UNK UNK, QD

REACTIONS (9)
  - Dry skin [Unknown]
  - Secretion discharge [Unknown]
  - Alopecia [Unknown]
  - Fall [Unknown]
  - Ear pain [Not Recovered/Not Resolved]
  - Ear disorder [Unknown]
  - Drug effect delayed [Not Recovered/Not Resolved]
  - Pruritus [Unknown]
  - Ear swelling [Unknown]
